FAERS Safety Report 4495975-9 (Version None)
Quarter: 2004Q4

REPORT INFORMATION
  Report Type: 
  Country: None (occurrence: None)
  Receive Date: 20040927
  Receipt Date: 20040517
  Transmission Date: 20050328
  Serious: No
  Sender: FDA-Public Use
  Company Number: USA040567779

PATIENT
  Age: 39 Year
  Sex: Male
  Weight: 98 kg

DRUGS (2)
  1. STRATTERA [Suspect]
     Indication: ATTENTION DEFICIT/HYPERACTIVITY DISORDER
     Dosage: 40 MG DAY
     Dates: start: 20030101
  2. LISINOPRIL [Concomitant]

REACTIONS (2)
  - SEXUAL DYSFUNCTION [None]
  - TESTICULAR PAIN [None]
